FAERS Safety Report 5869467-6 (Version None)
Quarter: 2008Q3

REPORT INFORMATION
  Report Type: 
  Country: None (occurrence: None)
  Receive Date: 20080828
  Receipt Date: 20080818
  Transmission Date: 20090109
  Serious: Yes (Death)
  Sender: FDA-Public Use
  Company Number: A-JP2008-21597

PATIENT
  Age: 75 Year
  Sex: Female

DRUGS (9)
  1. TRACLEER [Suspect]
     Indication: PULMONARY HYPERTENSION
     Dosage: 31.25 MG, BID, ORAL
     Route: 048
     Dates: start: 20080731, end: 20080801
  2. WARFARIN POTASSIUM (WARFARIN POTASSIUM) [Concomitant]
  3. BERAPROST SODIUM (BERAPROST SODIUM) [Concomitant]
  4. FUROSEMIDE (FUROSEMIDE) [Concomitant]
  5. DOBUTAMINE HCL [Concomitant]
  6. THEOPHYLLINE [Concomitant]
  7. MONTELUKAST SODIUM [Concomitant]
  8. FAMOTIDINE [Concomitant]
  9. OXYGEN (OXYGEN) [Concomitant]

REACTIONS (3)
  - INFECTION [None]
  - RESUSCITATION [None]
  - SHOCK [None]
